FAERS Safety Report 4959137-0 (Version None)
Quarter: 2006Q1

REPORT INFORMATION
  Report Type: 
  Country: None (occurrence: None)
  Receive Date: 20060330
  Receipt Date: 20060330
  Transmission Date: 20060701
  Serious: Yes (Death)
  Sender: FDA-Public Use
  Company Number: None

PATIENT
  Sex: Male
  Weight: 77.1115 kg

DRUGS (2)
  1. ZELDOX PFIZER [Suspect]
     Indication: DRUG DETOXIFICATION
     Dates: start: 20060222, end: 20060223
  2. GEODON [Suspect]
     Dates: start: 20060223, end: 20060223

REACTIONS (6)
  - CARDIO-RESPIRATORY ARREST [None]
  - CONTRAINDICATION TO MEDICAL TREATMENT [None]
  - DRUG TOXICITY [None]
  - LOSS OF CONSCIOUSNESS [None]
  - SNORING [None]
  - VENTRICULAR TACHYCARDIA [None]
